FAERS Safety Report 4730037-4 (Version None)
Quarter: 2005Q3

REPORT INFORMATION
  Report Type: 
  Country: None (occurrence: None)
  Receive Date: 20050728
  Receipt Date: 20050715
  Transmission Date: 20060218
  Serious: Yes (Other)
  Sender: FDA-Public Use
  Company Number: HQWYE786907APR05

PATIENT
  Age: 50 Year
  Sex: Female
  Weight: 89.44 kg

DRUGS (4)
  1. PREMARIN [Suspect]
     Indication: HYSTERECTOMY
     Dosage: 0.625 MG, ORAL
     Route: 048
     Dates: start: 20020715, end: 20021014
  2. PROCARDIA [Concomitant]
  3. LIPITOR [Concomitant]
  4. CALCIUM (CALCIUM) [Concomitant]

REACTIONS (2)
  - BREAST CANCER FEMALE [None]
  - METASTASES TO LYMPH NODES [None]
